FAERS Safety Report 4282328-1 (Version None)
Quarter: 2004Q1

REPORT INFORMATION
  Report Type: 
  Country: None (occurrence: None)
  Receive Date: 20040112
  Receipt Date: 20031007
  Transmission Date: 20041129
  Serious: Yes (Hospitalization)
  Sender: FDA-Public Use
  Company Number: 348853

PATIENT
  Age: 38 Year
  Sex: Male

DRUGS (2)
  1. FUZEON [Suspect]
     Dosage: SUBCUTANEOUS
     Route: 058
  2. INSULIN [Concomitant]

REACTIONS (2)
  - ADVERSE EVENT [None]
  - PNEUMONIA BACTERIAL [None]
